FAERS Safety Report 18189884 (Version 2)
Quarter: 2020Q3

REPORT INFORMATION
  Report Type: Report from Study
  Country: None (occurrence: US)
  Receive Date: 20200825
  Receipt Date: 20200908
  Transmission Date: 20201103
  Serious: Yes (Other)
  Sender: FDA-Public Use
  Company Number: US-ABBVIE-20K-163-3439269-00

PATIENT
  Sex: Male
  Weight: 77.18 kg

DRUGS (3)
  1. ATIVAN [Concomitant]
     Active Substance: LORAZEPAM
     Indication: ANXIETY
  2. HUMIRA [Suspect]
     Active Substance: ADALIMUMAB
     Dosage: TWICE MONTHLY
     Route: 058
     Dates: start: 201908, end: 202003
  3. HUMIRA [Suspect]
     Active Substance: ADALIMUMAB
     Indication: PSORIASIS
     Dosage: TWICE MONTHLY
     Route: 058
     Dates: start: 2008, end: 201904

REACTIONS (9)
  - Anxiety [Not Recovered/Not Resolved]
  - Dizziness [Recovering/Resolving]
  - Laboratory test abnormal [Unknown]
  - Vertigo [Recovering/Resolving]
  - Dental caries [Recovering/Resolving]
  - Intentional product misuse [Unknown]
  - Seborrhoea [Unknown]
  - Psoriasis [Not Recovered/Not Resolved]
  - Hypertension [Unknown]

NARRATIVE: CASE EVENT DATE: 2011
